FAERS Safety Report 23111570 (Version 2)
Quarter: 2023Q4

REPORT INFORMATION
  Report Type: Report from Study
  Country: FR (occurrence: FR)
  Receive Date: 20231026
  Receipt Date: 20231228
  Transmission Date: 20240109
  Serious: Yes (Other)
  Sender: FDA-Public Use
  Company Number: FR-MIRATI-MT2023PM05138

PATIENT
  Sex: Female
  Weight: 72 kg

DRUGS (4)
  1. KRAZATI [Suspect]
     Active Substance: ADAGRASIB
     Indication: Colorectal cancer
     Dosage: 600 MG, BID
     Route: 048
     Dates: start: 20230803, end: 20230914
  2. KRAZATI [Suspect]
     Active Substance: ADAGRASIB
     Dosage: 400 MG, BID
     Dates: start: 20231013
  3. ZOPICLONE [Concomitant]
     Active Substance: ZOPICLONE
     Indication: Insomnia
     Dosage: 7.5 MG, QD
     Route: 048
     Dates: start: 20230705
  4. CETUXIMAB [Concomitant]
     Active Substance: CETUXIMAB
     Indication: Colorectal cancer
     Dosage: 905 MG EVERY 2 WEEKS
     Route: 042
     Dates: start: 20230803

REACTIONS (6)
  - Atrial fibrillation [Recovered/Resolved]
  - Productive cough [Recovered/Resolved]
  - Abdominal pain upper [Recovered/Resolved]
  - Dizziness [Recovered/Resolved]
  - Malaise [Unknown]
  - Dyspnoea [Unknown]

NARRATIVE: CASE EVENT DATE: 20230803
